FAERS Safety Report 9531644 (Version 1)
Quarter: 2013Q3

REPORT INFORMATION
  Report Type: Spontaneous
  Country: US (occurrence: None)
  Receive Date: 20130917
  Receipt Date: 20130917
  Transmission Date: 20140515
  Serious: Yes (Hospitalization)
  Sender: FDA-Public Use
  Company Number: None

PATIENT
  Age: 42 Year
  Sex: Female
  Weight: 73.5 kg

DRUGS (2)
  1. SOLIRIS [Suspect]
     Indication: TRANSPLANT REJECTION
     Route: 042
     Dates: start: 20130827
  2. SOLIRIS [Suspect]
     Indication: PROPHYLAXIS
     Route: 042
     Dates: start: 20130827

REACTIONS (9)
  - Fatigue [None]
  - Nausea [None]
  - Vomiting [None]
  - Constipation [None]
  - Asthenia [None]
  - Refusal of treatment by patient [None]
  - Anaemia [None]
  - Sarcoma [None]
  - Wound [None]
